FAERS Safety Report 17274909 (Version 1)
Quarter: 2020Q1

REPORT INFORMATION
  Report Type: Spontaneous
  Country: US (occurrence: US)
  Receive Date: 20200116
  Receipt Date: 20200116
  Transmission Date: 20200409
  Serious: No
  Sender: FDA-Public Use
  Company Number: US-STRIDES ARCOLAB LIMITED-2018SP010765

PATIENT
  Age: 52 Year
  Sex: Female

DRUGS (4)
  1. SERTRALINE [Concomitant]
     Active Substance: SERTRALINE HYDROCHLORIDE
     Indication: PRODUCT USED FOR UNKNOWN INDICATION
     Dosage: 1.5 TABLETS DAILY
     Route: 065
  2. VITAMIN D2 [Concomitant]
     Active Substance: ERGOCALCIFEROL
     Indication: PRODUCT USED FOR UNKNOWN INDICATION
     Dosage: UNK,  2 TIMES A WEEK
     Route: 065
  3. CALCITRIOL CAPSULES, 0.5 MCG [Suspect]
     Active Substance: CALCITRIOL
     Indication: PRODUCT USED FOR UNKNOWN INDICATION
     Dosage: 0.5 MCG,1 CAPSULE DAILY
     Route: 048
     Dates: start: 20181104
  4. CALCITRIOL CAPSULES, 0.5 MCG [Suspect]
     Active Substance: CALCITRIOL
     Dosage: UNK
     Dates: start: 20181104

REACTIONS (1)
  - Abdominal discomfort [Not Recovered/Not Resolved]
